FAERS Safety Report 7849915-2 (Version None)
Quarter: 2011Q4

REPORT INFORMATION
  Report Type: 
  Country: None (occurrence: None)
  Receive Date: 20111025
  Receipt Date: 20111025
  Transmission Date: 20120403
  Serious: Yes (Hospitalization)
  Sender: FDA-Public Use
  Company Number: None

PATIENT
  Age: 80 Year
  Sex: Male
  Weight: 70.1 kg

DRUGS (2)
  1. FUROSEMIDE [Suspect]
     Indication: HYPERTENSION
     Dosage: 20 MG EVERY DAY PO
     Route: 048
     Dates: start: 20091209, end: 20110824
  2. METOPROLOL TARTRATE [Suspect]
     Indication: HYPERTENSION
     Dosage: 25 MG BID PO
     Route: 048
     Dates: start: 20110616

REACTIONS (5)
  - WEIGHT DECREASED [None]
  - URINARY TRACT INFECTION [None]
  - HYPOPHAGIA [None]
  - HERPES ZOSTER [None]
  - HYPOTENSION [None]
